FAERS Safety Report 5532946-5 (Version None)
Quarter: 2007Q4

REPORT INFORMATION
  Report Type: 
  Country: None (occurrence: None)
  Receive Date: 20071128
  Receipt Date: 20071114
  Transmission Date: 20080405
  Serious: Yes (Death, Hospitalization)
  Sender: FDA-Public Use
  Company Number: 2007002242

PATIENT
  Age: 45 Year
  Sex: Female
  Weight: 64.54 kg

DRUGS (13)
  1. TARCEVA [Suspect]
     Indication: ADENOCARCINOMA PANCREAS
     Dosage: 100 MG, ORAL
     Route: 048
     Dates: start: 20070527, end: 20070715
  2. TAXOTERE [Suspect]
     Dosage: (60 MG/M2, Q4W), INTRAVENOUS
     Route: 042
     Dates: start: 20070718, end: 20070718
  3. SALBUTAMOL (SALBUTAMOL) [Concomitant]
  4. MEGACE [Concomitant]
  5. MIRALAX [Concomitant]
  6. REGLAN [Concomitant]
  7. PROCHLOPERAZINE (PROCHLORPERAZINE) [Concomitant]
  8. DEXAMETHASONE TAB [Concomitant]
  9. PALONOSETRON [Concomitant]
  10. DIALUDID (HYDROMORPHONE HYDROCHLORIDE) [Concomitant]
  11. METRONIDAZOLE [Concomitant]
  12. GEMCITABINE [Concomitant]
  13. MORPHINE SULFATE [Concomitant]

REACTIONS (7)
  - CARDIOMYOPATHY [None]
  - EJECTION FRACTION DECREASED [None]
  - MALIGNANT NEOPLASM PROGRESSION [None]
  - NAUSEA [None]
  - OEDEMA PERIPHERAL [None]
  - VENTRICULAR TACHYCARDIA [None]
  - VOMITING [None]
